FAERS Safety Report 9472791 (Version 1)
Quarter: 2013Q3

REPORT INFORMATION
  Report Type: Spontaneous
  Country: US (occurrence: US)
  Receive Date: 20130823
  Receipt Date: 20130823
  Transmission Date: 20140515
  Serious: No
  Sender: FDA-Public Use
  Company Number: US-PFIZER INC-2013243536

PATIENT
  Age: 66 Year
  Sex: Female

DRUGS (6)
  1. EFFEXOR XR [Suspect]
     Indication: ANXIETY
     Dosage: 225 MG, 1X/DAY
  2. EFFEXOR XR [Suspect]
     Indication: DEPRESSION
     Dosage: UNK
  3. VENLAFAXINE [Suspect]
     Indication: ANXIETY
     Dosage: 37.5 MG, UNK
  4. VENLAFAXINE [Suspect]
     Indication: DEPRESSION
  5. VENLAFAXINE [Suspect]
     Indication: ANXIETY
     Dosage: 75 MG, UNK
  6. VENLAFAXINE [Suspect]
     Indication: DEPRESSION

REACTIONS (4)
  - Anxiety [Unknown]
  - Depression [Unknown]
  - Drug ineffective [Unknown]
  - Wrong technique in drug usage process [Unknown]
